FAERS Safety Report 4522299-3 (Version None)
Quarter: 2004Q4

REPORT INFORMATION
  Report Type: 
  Country: None (occurrence: None)
  Receive Date: 20041207
  Receipt Date: 20041122
  Transmission Date: 20050328
  Serious: Yes (Other)
  Sender: FDA-Public Use
  Company Number: FR_040804576

PATIENT
  Age: 73 Year
  Sex: Male
  Weight: 84 kg

DRUGS (2)
  1. GEMZAR [Suspect]
     Indication: NON-SMALL CELL LUNG CANCER
     Dosage: 1000 MG/M2/3 OTHER
     Route: 050
     Dates: start: 20040720, end: 20040803
  2. CARBOPLATIN [Concomitant]

REACTIONS (4)
  - ARTHRALGIA [None]
  - SCRATCH [None]
  - SKIN LESION [None]
  - VASCULAR PURPURA [None]
